FAERS Safety Report 13374299 (Version 1)
Quarter: 2017Q1

REPORT INFORMATION
  Report Type: Spontaneous
  Country: SI (occurrence: SI)
  Receive Date: 20170327
  Receipt Date: 20170327
  Transmission Date: 20170429
  Serious: Yes (Other)
  Sender: FDA-Public Use
  Company Number: SI-INGENUS PHARMACEUTICALS NJ, LLC-ING201703-000140

PATIENT
  Sex: Male

DRUGS (1)
  1. CARISOPRODOL AND ASPIRIN [Suspect]
     Active Substance: ASPIRIN\CARISOPRODOL
     Indication: ACUTE MYOCARDIAL INFARCTION

REACTIONS (3)
  - Anaphylactic reaction [Recovering/Resolving]
  - Kounis syndrome [Recovering/Resolving]
  - Condition aggravated [Recovering/Resolving]
